FAERS Safety Report 7340255-7 (Version None)
Quarter: 2011Q1

REPORT INFORMATION
  Report Type: 
  Country: None (occurrence: None)
  Receive Date: 20110309
  Receipt Date: 20110223
  Transmission Date: 20110831
  Serious: Yes (Disabling, Other)
  Sender: FDA-Public Use
  Company Number: DK-PFIZER INC-2011014193

PATIENT
  Age: 42 Year
  Sex: Male

DRUGS (5)
  1. WARFARIN [Concomitant]
     Dosage: UNK
  2. CORDARONE [Suspect]
     Indication: ATRIAL FIBRILLATION
     Dosage: 200 MG, 1X/DAY
     Route: 048
     Dates: end: 20101220
  3. SELO-ZOK [Concomitant]
     Dosage: UNK
     Dates: start: 20070212
  4. DRONEDARONE [Concomitant]
     Dosage: UNK
     Dates: start: 20101120
  5. VENLAFAXINE [Concomitant]
     Dosage: UNK
     Dates: start: 20100920

REACTIONS (6)
  - DYSPNOEA [None]
  - PAIN [None]
  - RESPIRATORY FAILURE [None]
  - THYROID FUNCTION TEST ABNORMAL [None]
  - COUGH [None]
  - PLEURAL EFFUSION [None]
